FAERS Safety Report 10556150 (Version 8)
Quarter: 2015Q4

REPORT INFORMATION
  Report Type: Report from Study
  Country: CA (occurrence: CA)
  Receive Date: 20141031
  Receipt Date: 20151209
  Transmission Date: 20160304
  Serious: Yes (Other)
  Sender: FDA-Public Use
  Company Number: CA-ROCHE-1312569

PATIENT
  Age: 62 Year
  Sex: Female

DRUGS (17)
  1. ALENDRONATE [Concomitant]
     Active Substance: ALENDRONATE SODIUM
  2. ACTEMRA [Suspect]
     Active Substance: TOCILIZUMAB
     Indication: RHEUMATOID ARTHRITIS
     Route: 042
     Dates: start: 20131008
  3. ARTHROTEC [Concomitant]
     Active Substance: DICLOFENAC SODIUM\MISOPROSTOL
  4. B COMPLEX 100 [Concomitant]
  5. ADALAT [Concomitant]
     Active Substance: NIFEDIPINE
  6. TRAMADOL. [Concomitant]
     Active Substance: TRAMADOL
  7. COD LIVER [Concomitant]
     Active Substance: COD LIVER OIL
  8. VALSARTAN. [Concomitant]
     Active Substance: VALSARTAN
  9. PLAQUENIL [Concomitant]
     Active Substance: HYDROXYCHLOROQUINE SULFATE
  10. CALCITONIN [Concomitant]
     Active Substance: CALCITONIN
  11. ACTEMRA [Suspect]
     Active Substance: TOCILIZUMAB
     Route: 042
     Dates: start: 20140811
  12. DILAUDID [Concomitant]
     Active Substance: HYDROMORPHONE HYDROCHLORIDE
  13. ASA [Concomitant]
     Active Substance: ASPIRIN
     Route: 065
  14. WELLBUTRIN [Concomitant]
     Active Substance: BUPROPION HYDROCHLORIDE
  15. ZOPICLONE [Concomitant]
     Active Substance: ZOPICLONE
  16. CITALOPRAM [Concomitant]
     Active Substance: CITALOPRAM HYDROBROMIDE
  17. OMEGA 3 [Concomitant]
     Active Substance: OMEGA-3 FATTY ACIDS

REACTIONS (9)
  - Weight increased [Not Recovered/Not Resolved]
  - Sinus headache [Unknown]
  - Sinusitis [Unknown]
  - Nasopharyngitis [Not Recovered/Not Resolved]
  - Pain in extremity [Unknown]
  - Tooth disorder [Unknown]
  - Fibromyalgia [Not Recovered/Not Resolved]
  - Alopecia [Unknown]
  - Dyspnoea [Unknown]

NARRATIVE: CASE EVENT DATE: 20131104
